FAERS Safety Report 14436486 (Version 1)
Quarter: 2018Q1

REPORT INFORMATION
  Report Type: Spontaneous
  Country: US (occurrence: US)
  Receive Date: 20180125
  Receipt Date: 20180125
  Transmission Date: 20180509
  Serious: No
  Sender: FDA-Public Use
  Company Number: US-BIOGEN-2018BI00511689

PATIENT
  Sex: Female

DRUGS (1)
  1. SPINRAZA [Suspect]
     Active Substance: NUSINERSEN
     Indication: SPINAL MUSCULAR ATROPHY
     Dosage: 3 LOADING DOSES OF 12 MILLIGRAMS, 1 PER 14 DAYS FOLLOWED BY A FOURTH LOADING DOSE OF 12 MILLIGRAM...
     Route: 037

REACTIONS (3)
  - Back pain [Unknown]
  - Apathy [Unknown]
  - Malaise [Unknown]
